FAERS Safety Report 9199981 (Version 1)
Quarter: 2013Q1

REPORT INFORMATION
  Report Type: Spontaneous
  Country: BR (occurrence: BR)
  Receive Date: 20130329
  Receipt Date: 20130329
  Transmission Date: 20140127
  Serious: Yes (Other)
  Sender: FDA-Public Use
  Company Number: BR-SANOFI-AVENTIS-2012SA048284

PATIENT
  Age: 34 Year
  Sex: Female
  Weight: 65 kg

DRUGS (2)
  1. CLEXANE [Suspect]
     Indication: THROMBOSIS
     Dosage: FORM: SYRINGE
     Route: 058
     Dates: start: 201206
  2. CLEXANE [Suspect]
     Indication: FACTOR VIII DEFICIENCY
     Dosage: FORM: SYRINGE
     Route: 058
     Dates: start: 201206

REACTIONS (5)
  - Thrombosis [Not Recovered/Not Resolved]
  - Drug ineffective [Unknown]
  - Exposure during pregnancy [Unknown]
  - Vascular calcification [Not Recovered/Not Resolved]
  - Pre-eclampsia [Unknown]
